FAERS Safety Report 23979522 (Version 1)
Quarter: 2024Q2

REPORT INFORMATION
  Report Type: Spontaneous
  Country: AM (occurrence: CO)
  Receive Date: 20240616
  Receipt Date: 20240616
  Transmission Date: 20240716
  Serious: Yes (Other)
  Sender: FDA-Public Use
  Company Number: AM-AMGEN-COLSP2024117075

PATIENT
  Sex: Female

DRUGS (1)
  1. ROMOSOZUMAB [Suspect]
     Active Substance: ROMOSOZUMAB
     Indication: Product used for unknown indication
     Dosage: UNK
     Route: 065

REACTIONS (1)
  - Delirium [Unknown]
